FAERS Safety Report 8321309-5 (Version None)
Quarter: 2012Q2

REPORT INFORMATION
  Report Type: 
  Country: None (occurrence: None)
  Receive Date: 20120430
  Receipt Date: 20120418
  Transmission Date: 20120825
  Serious: Yes (Other)
  Sender: FDA-Public Use
  Company Number: CA-JNJFOC-20120311578

PATIENT
  Age: 47 Year
  Sex: Female
  Weight: 81.65 kg

DRUGS (1)
  1. BENADRYL [Suspect]
     Indication: PRURITUS
     Dosage: ^ABOUT HALF OF THE BOTTLE^ ABOUT THREE TIMES A DAY
     Route: 061
     Dates: start: 20120314, end: 20120316

REACTIONS (4)
  - HYPERSENSITIVITY [None]
  - APPLICATION SITE DRYNESS [None]
  - CARDIOVASCULAR INSUFFICIENCY [None]
  - APPLICATION SITE PAIN [None]
